FAERS Safety Report 20410380 (Version 1)
Quarter: 2022Q1

REPORT INFORMATION
  Report Type: Spontaneous
  Country: CZ (occurrence: CZ)
  Receive Date: 20220201
  Receipt Date: 20220201
  Transmission Date: 20220424
  Serious: Yes (Other)
  Sender: FDA-Public Use
  Company Number: CZ-ROCHE-2992439

PATIENT
  Sex: Male

DRUGS (18)
  1. MIDAZOLAM [Suspect]
     Active Substance: MIDAZOLAM
     Indication: Myoclonic epilepsy
     Dosage: UNK
     Route: 042
  2. CLONAZEPAM [Suspect]
     Active Substance: CLONAZEPAM
     Route: 065
  3. PHENOBARBITAL [Suspect]
     Active Substance: PHENOBARBITAL
     Indication: Myoclonic epilepsy
     Dosage: UNK
     Route: 042
  4. LEVETIRACETAM [Suspect]
     Active Substance: LEVETIRACETAM
     Indication: Myoclonic epilepsy
     Dosage: UNK
     Route: 042
  5. PROPOFOL [Suspect]
     Active Substance: PROPOFOL
     Indication: Myoclonic epilepsy
     Dosage: UNK
     Route: 065
  6. VALPROIC ACID [Suspect]
     Active Substance: VALPROIC ACID
     Route: 065
  7. DIAZEPAM [Suspect]
     Active Substance: DIAZEPAM
     Route: 065
  8. VIGABATRIN [Suspect]
     Active Substance: VIGABATRIN
     Route: 065
  9. PHENYTOIN [Suspect]
     Active Substance: PHENYTOIN
     Route: 065
  10. STIRIPENTOL [Suspect]
     Active Substance: STIRIPENTOL
     Route: 065
  11. TOPIRAMATE [Suspect]
     Active Substance: TOPIRAMATE
     Route: 065
  12. ZONISAMIDE [Suspect]
     Active Substance: ZONISAMIDE
     Route: 065
  13. CHLORAL HYDRATE [Suspect]
     Active Substance: CHLORAL HYDRATE
     Route: 065
  14. ACTH [Suspect]
     Active Substance: CORTICOTROPIN
     Route: 065
  15. POTASSIUM BROMIDE [Suspect]
     Active Substance: POTASSIUM BROMIDE
     Route: 065
  16. THIOPENTAL [Suspect]
     Active Substance: THIOPENTAL
     Route: 065
  17. PYRIDOXINE [Suspect]
     Active Substance: PYRIDOXINE
     Route: 065
  18. IMMUNE GLOBULIN NOS [Suspect]
     Active Substance: IMMUNE GLOBULIN NOS
     Route: 065

REACTIONS (3)
  - Seizure [Unknown]
  - Disease progression [Unknown]
  - Drug ineffective [Unknown]
